FAERS Safety Report 25466317 (Version 1)
Quarter: 2025Q2

REPORT INFORMATION
  Report Type: Spontaneous
  Country: US (occurrence: US)
  Receive Date: 20250623
  Receipt Date: 20250623
  Transmission Date: 20250717
  Serious: No
  Sender: JOHNSON AND JOHNSON
  Company Number: US-JNJFOC-20250624586

PATIENT
  Sex: Female

DRUGS (1)
  1. TALQUETAMAB [Suspect]
     Active Substance: TALQUETAMAB
     Indication: Product used for unknown indication
     Route: 065

REACTIONS (13)
  - Onychoclasis [Recovering/Resolving]
  - Dry skin [Recovering/Resolving]
  - Rash [Recovered/Resolved]
  - Mastication disorder [Not Recovered/Not Resolved]
  - Ageusia [Not Recovered/Not Resolved]
  - Ageusia [Not Recovered/Not Resolved]
  - Dysgeusia [Not Recovered/Not Resolved]
  - Pain in jaw [Recovered/Resolved]
  - Nausea [Recovering/Resolving]
  - Heart rate increased [Recovered/Resolved]
  - Skin exfoliation [Recovering/Resolving]
  - Dysphagia [Not Recovered/Not Resolved]
  - Pruritus [Recovering/Resolving]
